FAERS Safety Report 7505604-5 (Version None)
Quarter: 2011Q2

REPORT INFORMATION
  Report Type: 
  Country: None (occurrence: None)
  Receive Date: 20110526
  Receipt Date: 20110519
  Transmission Date: 20111010
  Serious: Yes (Other)
  Sender: FDA-Public Use
  Company Number: FR-PFIZER INC-2011019456

PATIENT
  Age: 4 Year
  Sex: Female
  Weight: 35 kg

DRUGS (2)
  1. SOMATROPIN RDNA [Suspect]
     Indication: GROWTH RETARDATION
     Dosage: 11.5 MG, WEEKLY
  2. SOMATROPIN RDNA [Suspect]
     Dosage: 7.7 MG, WEEKLY
     Dates: start: 20101118

REACTIONS (3)
  - DIABETES MELLITUS [None]
  - THIRST [None]
  - WEIGHT INCREASED [None]
